FAERS Safety Report 16085649 (Version 1)
Quarter: 2019Q1

REPORT INFORMATION
  Report Type: Spontaneous
  Country: US (occurrence: US)
  Receive Date: 20190318
  Receipt Date: 20190318
  Transmission Date: 20190418
  Serious: Yes (Other)
  Sender: FDA-Public Use
  Company Number: US-AMGEN-USASP2019039646

PATIENT
  Age: 62 Year
  Sex: Female

DRUGS (5)
  1. IMATINIB. [Concomitant]
     Active Substance: IMATINIB MESYLATE
     Dosage: 400 MILLIGRAM, QD
  2. BLINATUMOMAB [Suspect]
     Active Substance: BLINATUMOMAB
     Indication: ACUTE LYMPHOCYTIC LEUKAEMIA
     Dosage: 28 MICROGRAM, QD
     Route: 065
  3. BLINATUMOMAB [Suspect]
     Active Substance: BLINATUMOMAB
     Dosage: 20 MICROGRAM, QD
     Route: 065
  4. NILOTINIB [Concomitant]
     Active Substance: NILOTINIB
     Dosage: 400 MILLIGRAM, BID
  5. BLINATUMOMAB [Suspect]
     Active Substance: BLINATUMOMAB
     Indication: PHILADELPHIA CHROMOSOME POSITIVE
     Dosage: 9 MICROGRAM, QD
     Route: 065

REACTIONS (3)
  - Neurotoxicity [Unknown]
  - Transaminases increased [Recovered/Resolved]
  - Cytokine release syndrome [Unknown]
